FAERS Safety Report 10169135 (Version 1)
Quarter: 2014Q2

REPORT INFORMATION
  Report Type: Spontaneous
  Country: US (occurrence: US)
  Receive Date: 20140513
  Receipt Date: 20140513
  Transmission Date: 20141212
  Serious: No
  Sender: FDA-Public Use
  Company Number: US-TARO-2013P1019145

PATIENT
  Age: 11 Month
  Sex: Male
  Weight: 10.89 kg

DRUGS (2)
  1. CETIRIZINE HCL CHILDREN ORAL SOLUTION ALLERGY 1MG/ML (SUGARFREE GRAPE) [Suspect]
     Indication: SEASONAL ALLERGY
     Route: 055
     Dates: start: 20130903
  2. GENERIC BENADRYL [Concomitant]
     Route: 048

REACTIONS (3)
  - Exposure via inhalation [Recovered/Resolved]
  - Cough [Recovered/Resolved]
  - Bronchospasm [Recovered/Resolved]
